FAERS Safety Report 10448103 (Version 2)
Quarter: 2014Q3

REPORT INFORMATION
  Report Type: Spontaneous
  Country: US (occurrence: US)
  Receive Date: 20140911
  Receipt Date: 20140911
  Transmission Date: 20150326
  Serious: Yes (Hospitalization)
  Sender: FDA-Public Use
  Company Number: US-GLAXOSMITHKLINE-A0744564A

PATIENT
  Sex: Female
  Weight: 81.4 kg

DRUGS (5)
  1. PRAVACHOL [Concomitant]
     Active Substance: PRAVASTATIN SODIUM
  2. ZOCOR [Concomitant]
     Active Substance: SIMVASTATIN
  3. ZOLOFT [Concomitant]
     Active Substance: SERTRALINE HYDROCHLORIDE
  4. ATENOLOL. [Concomitant]
     Active Substance: ATENOLOL
  5. AVANDIA [Suspect]
     Active Substance: ROSIGLITAZONE MALEATE
     Indication: TYPE 2 DIABETES MELLITUS
     Route: 048
     Dates: start: 20020223, end: 20061220

REACTIONS (6)
  - Dyspnoea [Unknown]
  - Myocardial infarction [Unknown]
  - Chest discomfort [Unknown]
  - Cardiac failure congestive [Unknown]
  - Pericardial effusion [Unknown]
  - Coronary artery disease [Unknown]
